FAERS Safety Report 5552006-7 (Version None)
Quarter: 2007Q4

REPORT INFORMATION
  Report Type: 
  Country: None (occurrence: None)
  Receive Date: 20071129
  Receipt Date: 20070510
  Transmission Date: 20080405
  Serious: Yes (Other)
  Sender: FDA-Public Use
  Company Number: US200703002345

PATIENT
  Age: 49 Year
  Sex: Male
  Weight: 74.8 kg

DRUGS (1)
  1. ZYPREXA [Suspect]
     Dosage: 2.5 MG; 5 MG
     Dates: start: 19981201

REACTIONS (2)
  - DIABETIC KETOACIDOSIS [None]
  - TYPE 2 DIABETES MELLITUS [None]
